FAERS Safety Report 4689330-6 (Version None)
Quarter: 2005Q2

REPORT INFORMATION
  Report Type: 
  Country: None (occurrence: None)
  Receive Date: 20050608
  Receipt Date: 20050217
  Transmission Date: 20051028
  Serious: No
  Sender: FDA-Public Use
  Company Number: 2005-BP-02696BP

PATIENT
  Age: 71 Year
  Sex: Male

DRUGS (6)
  1. SPIRIVA [Suspect]
     Indication: CHRONIC OBSTRUCTIVE PULMONARY DISEASE
     Dosage: 18 MCG (18 MCG, 1 IN 1 D), IH
     Route: 055
     Dates: start: 20050124, end: 20050221
  2. COUMADIN [Concomitant]
  3. TIAZAC [Concomitant]
  4. MECLIZINE [Concomitant]
  5. AMBIEN [Concomitant]
  6. ACIPHEX (RABERPRAZOLE SODIUM) [Concomitant]

REACTIONS (1)
  - HYPERTENSION [None]
